FAERS Safety Report 22736689 (Version 7)
Quarter: 2024Q4

REPORT INFORMATION
  Report Type: Report from Study
  Country: CA (occurrence: CA)
  Receive Date: 20230721
  Receipt Date: 20241215
  Transmission Date: 20250114
  Serious: Yes (Hospitalization)
  Sender: BIOCON
  Company Number: CA-MYLANLABS-2023M1050576

PATIENT

DRUGS (3)
  1. HULIO [Suspect]
     Active Substance: ADALIMUMAB-FKJP
     Indication: Ankylosing spondylitis
     Dosage: UNK MILLIGRAM
     Route: 058
     Dates: start: 20220522
  2. HULIO [Suspect]
     Active Substance: ADALIMUMAB-FKJP
     Dosage: 40 MILLIGRAM, BIWEEKLY
     Route: 058
     Dates: start: 20220513
  3. HULIO [Suspect]
     Active Substance: ADALIMUMAB-FKJP
     Dosage: 40 MILLIGRAM, BIWEEKLY
     Route: 058
     Dates: start: 20230804

REACTIONS (5)
  - Anal fistula [Unknown]
  - Surgery [Unknown]
  - COVID-19 [Unknown]
  - Therapy interrupted [Recovered/Resolved]
  - Circumstance or information capable of leading to medication error [Unknown]
